FAERS Safety Report 6107775-4 (Version None)
Quarter: 2009Q1

REPORT INFORMATION
  Report Type: 
  Country: None (occurrence: None)
  Receive Date: 20090309
  Receipt Date: 20090304
  Transmission Date: 20090719
  Serious: Yes (Other)
  Sender: FDA-Public Use
  Company Number: B0557767A

PATIENT
  Age: 50 Year
  Sex: Female

DRUGS (2)
  1. LAMIVUDINE [Suspect]
     Indication: CHRONIC HEPATITIS
  2. ADEFOVIR DIPIVOXIL KIT [Suspect]
     Indication: CHRONIC HEPATITIS

REACTIONS (8)
  - ASCITES [None]
  - BLOOD BILIRUBIN INCREASED [None]
  - GENOTYPE DRUG RESISTANCE TEST POSITIVE [None]
  - HEPATIC FAILURE [None]
  - HEPATITIS B DNA INCREASED [None]
  - JAUNDICE [None]
  - NO THERAPEUTIC RESPONSE [None]
  - VIRAL INFECTION [None]
